FAERS Safety Report 6456737-6 (Version None)
Quarter: 2009Q4

REPORT INFORMATION
  Report Type: 
  Country: None (occurrence: None)
  Receive Date: 20091125
  Receipt Date: 20091118
  Transmission Date: 20100525
  Serious: Yes (Death)
  Sender: FDA-Public Use
  Company Number: US-ALEXION-A200900990

PATIENT
  Sex: Female

DRUGS (2)
  1. SOLIRIS 300MG [Suspect]
     Indication: PAROXYSMAL NOCTURNAL HAEMOGLOBINURIA
     Dosage: 600 MG, QW X4
     Route: 042
     Dates: start: 20090126, end: 20090201
  2. SOLIRIS 300MG [Suspect]
     Dosage: 900 MG, UNK
     Route: 042
     Dates: start: 20090201, end: 20090527

REACTIONS (1)
  - DEATH [None]
